FAERS Safety Report 16360908 (Version 3)
Quarter: 2019Q2

REPORT INFORMATION
  Report Type: Report from Study
  Country: TW (occurrence: TW)
  Receive Date: 20190528
  Receipt Date: 20190611
  Transmission Date: 20190711
  Serious: Yes (Hospitalization, Other)
  Sender: FDA-Public Use
  Company Number: TW-UCBSA-2019021350

PATIENT
  Age: 78 Year
  Sex: Male
  Weight: 67.9 kg

DRUGS (8)
  1. CERTOLIZUMAB PEGOL [Suspect]
     Active Substance: CERTOLIZUMAB PEGOL
     Indication: RHEUMATOID ARTHRITIS
     Dosage: 400 MILLIGRAM, EV 2 WEEKS(QOW)
     Route: 058
     Dates: start: 20190319, end: 20190423
  2. CEVIMELINE. [Concomitant]
     Active Substance: CEVIMELINE
     Indication: RHEUMATOID ARTHRITIS
     Dosage: 30 MILLIGRAM, 3X/DAY (TID)
     Route: 048
     Dates: start: 20150416
  3. MELOXICAM. [Concomitant]
     Active Substance: MELOXICAM
     Indication: RHEUMATOID ARTHRITIS
     Dosage: 7.5 MILLIGRAM, 2X/DAY (BID)
     Route: 048
     Dates: start: 20180904, end: 20190514
  4. AMLODIPINE [Concomitant]
     Active Substance: AMLODIPINE BESYLATE
     Indication: HYPERTENSION
     Dosage: 5 MILLIGRAM, ONCE DAILY (QD)
     Route: 048
     Dates: start: 20190404
  5. IWELL [Concomitant]
     Indication: PROPHYLAXIS
     Dosage: UNK
     Route: 048
     Dates: start: 20180508, end: 20190514
  6. OXACILLIN [Concomitant]
     Active Substance: OXACILLIN SODIUM
     Indication: CELLULITIS
  7. PREDNISOLONE. [Concomitant]
     Active Substance: PREDNISOLONE
     Indication: RHEUMATOID ARTHRITIS
     Dosage: 5 MILLIGRAM, 2X/DAY (BID)
     Route: 048
     Dates: start: 20131114
  8. ACTEIN [Concomitant]
     Indication: BRONCHITIS
     Dosage: 600 MILLIGRAM, ONCE DAILY (QD)
     Route: 048
     Dates: start: 20190409, end: 20190514

REACTIONS (4)
  - Rheumatoid arthritis [Unknown]
  - Lower gastrointestinal haemorrhage [Not Recovered/Not Resolved]
  - Melaena [Recovered/Resolved]
  - Cellulitis [Recovering/Resolving]

NARRATIVE: CASE EVENT DATE: 20190508
